FAERS Safety Report 7083303-4 (Version None)
Quarter: 2010Q4

REPORT INFORMATION
  Report Type: 
  Country: None (occurrence: None)
  Receive Date: 20101104
  Receipt Date: 20101025
  Transmission Date: 20110411
  Serious: Yes (Hospitalization, Other)
  Sender: FDA-Public Use
  Company Number: PHHY2010DE62907

PATIENT
  Sex: Female

DRUGS (2)
  1. EXELON [Suspect]
     Indication: DEMENTIA ALZHEIMER'S TYPE
     Dosage: 9.5 MG/24 HRS PATCH
     Route: 062
     Dates: start: 20100201
  2. REMERGIL [Concomitant]
     Indication: DEPRESSED MOOD

REACTIONS (4)
  - APPLICATION SITE ERYTHEMA [None]
  - CONVULSION [None]
  - MYOCLONUS [None]
  - OVERDOSE [None]
